FAERS Safety Report 5058973-2 (Version None)
Quarter: 2006Q2

REPORT INFORMATION
  Report Type: 
  Country: None (occurrence: None)
  Receive Date: 20060629
  Receipt Date: 20060410
  Transmission Date: 20061013
  Serious: No
  Sender: FDA-Public Use
  Company Number: PHEH2006US04728

PATIENT
  Age: 75 Year
  Sex: Female

DRUGS (4)
  1. ENABLEX [Suspect]
     Indication: HYPERTONIC BLADDER
     Dosage: 7.5 MG, QD
     Dates: start: 20060320
  2. TRAMADOL HCL [Concomitant]
  3. CELEBREX [Concomitant]
  4. ZOCOR [Concomitant]

REACTIONS (1)
  - DRUG INEFFECTIVE [None]
